FAERS Safety Report 24769624 (Version 1)
Quarter: 2024Q4

REPORT INFORMATION
  Report Type: Spontaneous
  Country: DE (occurrence: DE)
  Receive Date: 20241224
  Receipt Date: 20241224
  Transmission Date: 20250115
  Serious: Yes (Other)
  Sender: ALCON
  Company Number: DE-ALCON LABORATORIES-ALC2024DE005418

PATIENT
  Age: 53 Year
  Sex: Male

DRUGS (4)
  1. CLONIDINE [Suspect]
     Active Substance: CLONIDINE
     Indication: Product used for unknown indication
     Route: 047
  2. DORZOLAMIDE [Suspect]
     Active Substance: DORZOLAMIDE
     Indication: Product used for unknown indication
     Route: 047
  3. LATANOPROST\NETARSUDIL MESYLATE [Suspect]
     Active Substance: LATANOPROST\NETARSUDIL MESYLATE
     Indication: Open angle glaucoma
     Dosage: UNK
     Route: 047
  4. SIMBRINZA [Suspect]
     Active Substance: BRIMONIDINE TARTRATE\BRINZOLAMIDE
     Indication: Product used for unknown indication
     Route: 047

REACTIONS (5)
  - Cornea verticillata [Unknown]
  - Glaucomatous optic neuropathy [Unknown]
  - Intraocular pressure decreased [Unknown]
  - Drug intolerance [Unknown]
  - Conjunctival hyperaemia [Unknown]
